FAERS Safety Report 22121833 (Version 1)
Quarter: 2023Q1

REPORT INFORMATION
  Report Type: Report from Study
  Country: US (occurrence: None)
  Receive Date: 20230321
  Receipt Date: 20230321
  Transmission Date: 20230418
  Serious: Yes (Hospitalization, Other)
  Sender: FDA-Public Use
  Company Number: US-ROCHE-3161120

PATIENT
  Age: 70 Year
  Sex: Male
  Weight: 78.5 kg

DRUGS (38)
  1. TOCILIZUMAB [Suspect]
     Active Substance: TOCILIZUMAB
     Indication: Malignant melanoma
     Dosage: DATE OF LAST TREATMENT:01/APR/2022
     Route: 042
     Dates: start: 20211012
  2. IPILIMUMAB [Suspect]
     Active Substance: IPILIMUMAB
     Indication: Malignant melanoma
     Dosage: DATE OF LAST TREATMENT: 14/DEC/2021
     Route: 042
     Dates: start: 20211012
  3. NIVOLUMAB [Suspect]
     Active Substance: NIVOLUMAB
     Indication: Malignant melanoma
     Dosage: DATE OF LAST TREATMENT: 01/FEB/2023
     Route: 042
     Dates: start: 20211012
  4. LIDOCAINE [Concomitant]
     Active Substance: LIDOCAINE
  5. LIDOCAINE [Concomitant]
     Active Substance: LIDOCAINE
  6. LACTATED RINGERS SOLUTION [Concomitant]
     Active Substance: CALCIUM CHLORIDE\POTASSIUM CHLORIDE\SODIUM CHLORIDE\SODIUM LACTATE
     Route: 042
     Dates: start: 20220812
  7. MORPHINE [Concomitant]
     Active Substance: MORPHINE
  8. SODIUM CHLORIDE [Concomitant]
     Active Substance: SODIUM CHLORIDE
     Route: 042
  9. SODIUM CHLORIDE [Concomitant]
     Active Substance: SODIUM CHLORIDE
     Route: 042
  10. SOLU-MEDROL [Concomitant]
     Active Substance: METHYLPREDNISOLONE SODIUM SUCCINATE
     Route: 042
  11. ZOFRAN [Concomitant]
     Active Substance: ONDANSETRON HYDROCHLORIDE
     Route: 042
  12. ACETAMINOPHEN\OXYCODONE HYDROCHLORIDE [Concomitant]
     Active Substance: ACETAMINOPHEN\OXYCODONE HYDROCHLORIDE
     Dosage: 325 MG- 5MG
     Route: 048
  13. AMBIEN [Concomitant]
     Active Substance: ZOLPIDEM TARTRATE
     Route: 048
  14. NORVASC [Concomitant]
     Active Substance: AMLODIPINE BESYLATE
     Route: 048
  15. BETAMETHASONE [Concomitant]
     Active Substance: BETAMETHASONE
  16. ALPHAGAN P [Concomitant]
     Active Substance: BRIMONIDINE TARTRATE
  17. PLAVIX [Concomitant]
     Active Substance: CLOPIDOGREL BISULFATE
     Route: 048
  18. COENZYME Q10 [Concomitant]
     Active Substance: DIETARY SUPPLEMENT\UBIDECARENONE
  19. FLEXERIL [Concomitant]
     Active Substance: CYCLOBENZAPRINE HYDROCHLORIDE
     Route: 048
  20. PEPCID [Concomitant]
     Active Substance: FAMOTIDINE
     Route: 048
  21. XALATAN [Concomitant]
     Active Substance: LATANOPROST
  22. ATIVAN [Concomitant]
     Active Substance: LORAZEPAM
     Route: 048
  23. PRILOSEC [Concomitant]
     Active Substance: OMEPRAZOLE MAGNESIUM
     Route: 048
  24. ROSUVASTATIN [Concomitant]
     Active Substance: ROSUVASTATIN
     Route: 048
  25. CIALIS [Concomitant]
     Active Substance: TADALAFIL
     Route: 048
  26. TYLENOL [Concomitant]
     Active Substance: ACETAMINOPHEN
     Route: 048
  27. ALBUTEROL [Concomitant]
     Active Substance: ALBUTEROL
  28. TEMOVATE [Concomitant]
     Active Substance: CLOBETASOL PROPIONATE
  29. LOMOTIL [Concomitant]
     Active Substance: ATROPINE SULFATE\DIPHENOXYLATE HYDROCHLORIDE
  30. ANTIVERT [Concomitant]
     Active Substance: MECLIZINE HYDROCHLORIDE
     Route: 048
  31. KLOR-CON [Concomitant]
     Active Substance: POTASSIUM CHLORIDE
     Route: 048
     Dates: start: 20220816
  32. OXYCODONE [Concomitant]
     Active Substance: OXYCODONE
     Dates: start: 20220816, end: 20220913
  33. DELTASONE [Concomitant]
     Active Substance: PREDNISONE
     Route: 048
     Dates: start: 20220812
  34. TRIAMCINOLONE ACETONIDE [Concomitant]
     Active Substance: TRIAMCINOLONE ACETONIDE
     Dates: start: 20220215
  35. ASPIRIN [Concomitant]
     Active Substance: ASPIRIN
  36. TADALAFIL [Concomitant]
     Active Substance: TADALAFIL
  37. FLONASE [Concomitant]
     Active Substance: FLUTICASONE PROPIONATE
  38. CYMBALTA [Concomitant]
     Active Substance: DULOXETINE HYDROCHLORIDE

REACTIONS (5)
  - Diarrhoea [Not Recovered/Not Resolved]
  - Nausea [Not Recovered/Not Resolved]
  - Dehydration [Not Recovered/Not Resolved]
  - Cerebrovascular accident [Recovered/Resolved with Sequelae]
  - Enterocolitis [Unknown]

NARRATIVE: CASE EVENT DATE: 20220811
